FAERS Safety Report 9282520 (Version 1)
Quarter: 2013Q2

REPORT INFORMATION
  Report Type: Spontaneous
  Country: IT (occurrence: IT)
  Receive Date: 20130510
  Receipt Date: 20130510
  Transmission Date: 20140414
  Serious: Yes (Hospitalization)
  Sender: FDA-Public Use
  Company Number: IT-PFIZER INC-2013142331

PATIENT
  Age: 47 Year
  Sex: Female

DRUGS (2)
  1. LINCOCIN [Suspect]
     Indication: PHARYNGITIS
     Dosage: 5 DF, TOTAL
     Route: 030
     Dates: start: 20130403, end: 20130405
  2. PENTACOL [Concomitant]
     Indication: COLITIS ULCERATIVE
     Dosage: UNK
     Dates: start: 20060101, end: 20130407

REACTIONS (5)
  - Rash [Recovering/Resolving]
  - Suffocation feeling [Recovering/Resolving]
  - Tongue disorder [Recovering/Resolving]
  - Vertigo [Recovering/Resolving]
  - Pruritus generalised [Recovering/Resolving]
